FAERS Safety Report 25037191 (Version 2)
Quarter: 2025Q2

REPORT INFORMATION
  Report Type: Spontaneous
  Country: US (occurrence: US)
  Receive Date: 20250304
  Receipt Date: 20250530
  Transmission Date: 20250717
  Serious: Yes (Other)
  Sender: BAYER HEALTHCARE PHARMACEUTICALS INC.
  Company Number: US-BAYER-2025A029312

PATIENT
  Age: 42 Year
  Sex: Male

DRUGS (4)
  1. JIVI [Suspect]
     Active Substance: DAMOCTOCOG ALFA PEGOL
     Indication: Factor VIII deficiency
     Dosage: 1000 UNITS/INFUSE 3084 UNITS BIW PRN
     Route: 042
     Dates: start: 202406
  2. JIVI [Suspect]
     Active Substance: DAMOCTOCOG ALFA PEGOL
     Indication: Factor VIII deficiency
     Dosage: 2000 UNITS/ INFUSE 3084 UNITS BIW PRN
     Route: 042
     Dates: start: 202406
  3. JIVI [Suspect]
     Active Substance: DAMOCTOCOG ALFA PEGOL
     Indication: Factor VIII deficiency
     Route: 042
  4. MELOXICAM [Concomitant]
     Active Substance: MELOXICAM

REACTIONS (1)
  - Haemarthrosis [None]

NARRATIVE: CASE EVENT DATE: 20250212
